FAERS Safety Report 13080096 (Version 1)
Quarter: 2017Q1

REPORT INFORMATION
  Report Type: Spontaneous
  Country: GE (occurrence: GE)
  Receive Date: 20170103
  Receipt Date: 20170103
  Transmission Date: 20170428
  Serious: Yes (Other)
  Sender: FDA-Public Use
  Company Number: GE-BAYER-2016-243946

PATIENT
  Age: 18 Year
  Sex: Female

DRUGS (2)
  1. YAZ [Suspect]
     Active Substance: DROSPIRENONE\ETHINYL ESTRADIOL
     Indication: ACNE
  2. YAZ [Suspect]
     Active Substance: DROSPIRENONE\ETHINYL ESTRADIOL
     Indication: CONTRACEPTION
     Dosage: UNK
     Route: 048
     Dates: start: 20161007

REACTIONS (5)
  - Drug administration error [None]
  - Abortion spontaneous [None]
  - Drug ineffective [None]
  - Pregnancy on oral contraceptive [None]
  - Uterine haemorrhage [None]

NARRATIVE: CASE EVENT DATE: 20161207
